FAERS Safety Report 5126749-3 (Version None)
Quarter: 2006Q4

REPORT INFORMATION
  Report Type: 
  Country: None (occurrence: None)
  Receive Date: 20061013
  Receipt Date: 20061005
  Transmission Date: 20070319
  Serious: Yes (Other)
  Sender: FDA-Public Use
  Company Number: US-ROCHE-466417

PATIENT
  Age: 52 Year
  Sex: Male

DRUGS (2)
  1. PEGASYS [Suspect]
     Route: 058
     Dates: start: 20060313
  2. RIBAVIRIN [Suspect]
     Route: 048
     Dates: start: 20060313

REACTIONS (5)
  - IATROGENIC INJURY [None]
  - MONOPLEGIA [None]
  - NERVE INJURY [None]
  - PARALYSIS [None]
  - VISION BLURRED [None]
